FAERS Safety Report 9435844 (Version 1)
Quarter: 2013Q3

REPORT INFORMATION
  Report Type: Spontaneous
  Country: US (occurrence: None)
  Receive Date: 20130801
  Receipt Date: 20130801
  Transmission Date: 20140515
  Serious: Yes (Other)
  Sender: FDA-Public Use
  Company Number: None

PATIENT
  Age: 38 Year
  Sex: Female
  Weight: 97.52 kg

DRUGS (3)
  1. NORCO [Suspect]
     Indication: FIBROMYALGIA
     Dosage: 1 4 PER DAY PO
     Route: 048
     Dates: start: 20130414, end: 20130613
  2. NORCO [Suspect]
     Indication: INTERVERTEBRAL DISC PROTRUSION
     Dosage: 1 4 PER DAY PO
     Route: 048
     Dates: start: 20130414, end: 20130613
  3. NORCO [Concomitant]

REACTIONS (8)
  - Nausea [None]
  - Headache [None]
  - Hyperhidrosis [None]
  - Drug withdrawal syndrome [None]
  - Insomnia [None]
  - Local swelling [None]
  - Drug ineffective [None]
  - Product formulation issue [None]
